FAERS Safety Report 21321835 (Version 1)
Quarter: 2022Q3

REPORT INFORMATION
  Report Type: Spontaneous
  Country: US (occurrence: US)
  Receive Date: 20220912
  Receipt Date: 20220912
  Transmission Date: 20221026
  Serious: No
  Sender: FDA-Public Use
  Company Number: US-CADILA HEALTHCARE LIMITED-US-ZYDUS-080254

PATIENT

DRUGS (1)
  1. SPIRONOLACTONE [Suspect]
     Active Substance: SPIRONOLACTONE
     Indication: Hypertension
     Dosage: 25 MILLIGRAM, QD
     Route: 065
     Dates: start: 202106, end: 202203

REACTIONS (3)
  - Breast pain [Recovered/Resolved]
  - Gynaecomastia [Unknown]
  - Breast discomfort [Not Recovered/Not Resolved]
